FAERS Safety Report 6646771-5 (Version None)
Quarter: 2010Q1

REPORT INFORMATION
  Report Type: 
  Country: None (occurrence: None)
  Receive Date: 20100323
  Receipt Date: 20100309
  Transmission Date: 20100710
  Serious: No
  Sender: FDA-Public Use
  Company Number: US-JNJFOC-20100303234

PATIENT
  Sex: Female
  Weight: 56.7 kg

DRUGS (4)
  1. DURAGESIC-100 [Suspect]
     Indication: FIBROMYALGIA
     Route: 062
  2. FENTANYL CITRATE [Suspect]
     Indication: FIBROMYALGIA
     Route: 062
  3. PERCOCET [Concomitant]
     Indication: PAIN
     Dosage: 10/ 600
     Route: 048
  4. HYZAAR [Concomitant]
     Indication: BLOOD PRESSURE
     Route: 048

REACTIONS (4)
  - DRUG INEFFECTIVE [None]
  - INCORRECT DRUG ADMINISTRATION RATE [None]
  - MALAISE [None]
  - NAUSEA [None]
